FAERS Safety Report 11001545 (Version 1)
Quarter: 2015Q2

REPORT INFORMATION
  Report Type: Spontaneous
  Country: DE (occurrence: DE)
  Receive Date: 20150408
  Receipt Date: 20150408
  Transmission Date: 20150821
  Serious: Yes (Life-Threatening, Hospitalization)
  Sender: FDA-Public Use
  Company Number: GXKR2015DE001845

PATIENT
  Age: 74 Year
  Sex: Male
  Weight: 81 kg

DRUGS (1)
  1. NEOTAXAN [Suspect]
     Active Substance: PACLITAXEL
     Indication: OESOPHAGEAL CARCINOMA
     Dosage: UNK MG, UNK
     Route: 041
     Dates: start: 20150226

REACTIONS (3)
  - Cardiac arrest [Recovered/Resolved]
  - Erythema [Unknown]
  - Discomfort [Unknown]

NARRATIVE: CASE EVENT DATE: 20150226
